FAERS Safety Report 4416580-6 (Version None)
Quarter: 2004Q3

REPORT INFORMATION
  Report Type: 
  Country: None (occurrence: None)
  Receive Date: 20040805
  Receipt Date: 20040727
  Transmission Date: 20050211
  Serious: Yes (Other)
  Sender: FDA-Public Use
  Company Number: JP-BRISTOL-MYERS SQUIBB COMPANY-12660312

PATIENT
  Age: 18 Year
  Sex: Male

DRUGS (8)
  1. CYCLOPHOSPHAMIDE [Suspect]
     Indication: CHRONIC GRANULOMATOUS DISEASE
     Dosage: DAYS -5, -4
     Dates: start: 20020101, end: 20020101
  2. FLUDARABINE PHOSPHATE [Suspect]
     Indication: CHRONIC GRANULOMATOUS DISEASE
     Dosage: DAYS -5, -4, -3, -2, -1
     Dates: start: 20020101, end: 20020101
  3. METHOTREXATE [Concomitant]
  4. TACROLIMUS [Concomitant]
  5. AMPHOTERICIN B [Concomitant]
  6. ACYCLOVIR [Concomitant]
  7. CIPROFLOXACIN [Concomitant]
  8. SULFAMETHOXAZOLE + TRIMETHOPRIM [Concomitant]

REACTIONS (2)
  - APLASIA PURE RED CELL [None]
  - CYSTITIS HAEMORRHAGIC [None]
